FAERS Safety Report 8336262-8 (Version None)
Quarter: 2012Q2

REPORT INFORMATION
  Report Type: 
  Country: None (occurrence: None)
  Receive Date: 20120504
  Receipt Date: 20120427
  Transmission Date: 20120825
  Serious: Yes (Other)
  Sender: FDA-Public Use
  Company Number: US-PFIZER INC-2012105459

PATIENT
  Sex: Female

DRUGS (1)
  1. EFFEXOR XR [Suspect]
     Dosage: UNK

REACTIONS (6)
  - TRANSFUSION [None]
  - MALAISE [None]
  - IMMUNODEFICIENCY [None]
  - PROGRESSIVE MULTIPLE SCLEROSIS [None]
  - ARTHROPATHY [None]
  - SURGERY [None]
